FAERS Safety Report 5973621-2 (Version None)
Quarter: 2008Q4

REPORT INFORMATION
  Report Type: 
  Country: None (occurrence: None)
  Receive Date: 20081201
  Receipt Date: 20081124
  Transmission Date: 20090506
  Serious: Yes (Hospitalization, Other)
  Sender: FDA-Public Use
  Company Number: US-ELI_LILLY_AND_COMPANY-US200811005730

PATIENT
  Sex: Female

DRUGS (8)
  1. FORTEO [Suspect]
     Dosage: 20 UG, DAILY (1/D)
     Dates: start: 20061201
  2. FORTEO [Suspect]
     Dosage: 20 UG, DAILY (1/D)
     Dates: start: 20061201
  3. FISH OIL [Concomitant]
  4. CENTRUM [Concomitant]
  5. WELLBUTRIN [Concomitant]
  6. XALATAN [Concomitant]
  7. PREVACID [Concomitant]
  8. TYLENOL                                 /SCH/ [Concomitant]

REACTIONS (7)
  - ASTHENIA [None]
  - DIZZINESS [None]
  - FALL [None]
  - GALLBLADDER DISORDER [None]
  - HEARING IMPAIRED [None]
  - PELVIC FRACTURE [None]
  - VERTIGO POSITIONAL [None]
